FAERS Safety Report 5814692-3 (Version None)
Quarter: 2008Q3

REPORT INFORMATION
  Report Type: 
  Country: None (occurrence: None)
  Receive Date: 20080718
  Receipt Date: 20080327
  Transmission Date: 20090109
  Serious: No
  Sender: FDA-Public Use
  Company Number: US-KINGPHARMUSA00001-K200800382

PATIENT

DRUGS (3)
  1. LEVOXYL [Suspect]
     Indication: AUTOIMMUNE THYROIDITIS
     Dosage: 25 MCG, QD
     Route: 048
     Dates: start: 20070101, end: 20070101
  2. LEVOXYL [Suspect]
     Dosage: 12.5 MCG, QD
     Route: 048
     Dates: start: 20080228
  3. AMITRIPTYLINE HCL [Concomitant]
     Dosage: UNK, UNK
     Dates: end: 20080301

REACTIONS (4)
  - BLOOD THYROID STIMULATING HORMONE INCREASED [None]
  - DIARRHOEA [None]
  - INSOMNIA [None]
  - TREMOR [None]
